FAERS Safety Report 8302741-2 (Version None)
Quarter: 2012Q2

REPORT INFORMATION
  Report Type: 
  Country: None (occurrence: None)
  Receive Date: 20120420
  Receipt Date: 20120412
  Transmission Date: 20120825
  Serious: Yes (Hospitalization)
  Sender: FDA-Public Use
  Company Number: SE-ELI_LILLY_AND_COMPANY-SE201204004353

PATIENT
  Age: 65 Year
  Sex: Female

DRUGS (7)
  1. ATACAND [Concomitant]
     Dosage: 32 MG, UNKNOWN
  2. BEVIPLEX [Concomitant]
  3. BYETTA [Suspect]
     Dosage: 10 UG, BID
     Dates: start: 20110401
  4. LIPITOR [Concomitant]
     Dosage: 40 MG, UNKNOWN
  5. FELODIPINE [Concomitant]
  6. METFORMIN HCL [Concomitant]
  7. SALURES [Concomitant]
     Dosage: 2.5 MG, UNKNOWN

REACTIONS (1)
  - CEREBRAL HAEMORRHAGE [None]
